FAERS Safety Report 7589843-3 (Version None)
Quarter: 2011Q3

REPORT INFORMATION
  Report Type: 
  Country: None (occurrence: None)
  Receive Date: 20110705
  Receipt Date: 20090428
  Transmission Date: 20111222
  Serious: Yes (Hospitalization)
  Sender: FDA-Public Use
  Company Number: DE-BAYER-2011-057676

PATIENT

DRUGS (1)
  1. EXTAVIA [Suspect]
     Dosage: UNK
     Route: 065
     Dates: start: 20090427

REACTIONS (3)
  - BLADDER DISORDER [None]
  - LIMB DISCOMFORT [None]
  - BALANCE DISORDER [None]
